FAERS Safety Report 9140962 (Version 1)
Quarter: 2013Q1

REPORT INFORMATION
  Report Type: Spontaneous
  Country: CN (occurrence: CN)
  Receive Date: 20130305
  Receipt Date: 20130305
  Transmission Date: 20140127
  Serious: Yes (Hospitalization)
  Sender: FDA-Public Use
  Company Number: PHHY2012CN127791

PATIENT
  Age: 60 Year
  Sex: Female
  Weight: 72 kg

DRUGS (2)
  1. DIOVAN [Suspect]
     Indication: HYPERTENSION
     Dosage: 80 MG, QD
     Route: 048
     Dates: start: 20110610, end: 20110810
  2. METOPROLOL [Suspect]
     Dosage: 95 MG, QD

REACTIONS (4)
  - Bronchitis [Unknown]
  - Productive cough [Unknown]
  - Sensation of foreign body [Unknown]
  - Cough [Recovering/Resolving]
